FAERS Safety Report 16543575 (Version 1)
Quarter: 2019Q3

REPORT INFORMATION
  Report Type: Spontaneous
  Country: US (occurrence: US)
  Receive Date: 20190709
  Receipt Date: 20190709
  Transmission Date: 20191004
  Serious: No
  Sender: FDA-Public Use
  Company Number: US-C B FLEET CO INC-201805-US-001032

PATIENT
  Sex: Female

DRUGS (1)
  1. NIX [Suspect]
     Active Substance: PERMETHRIN
     Indication: PRODUCT USED FOR UNKNOWN INDICATION
     Dosage: I LEFT IT ON 11 - 12 MINUTES AT THE MOST
     Route: 061

REACTIONS (4)
  - Skin haemorrhage [Not Recovered/Not Resolved]
  - Incorrect product administration duration [None]
  - Application site erosion [Not Recovered/Not Resolved]
  - Erythema [Not Recovered/Not Resolved]
